FAERS Safety Report 5477581-2 (Version None)
Quarter: 2007Q3

REPORT INFORMATION
  Report Type: 
  Country: None (occurrence: None)
  Receive Date: 20070925
  Receipt Date: 20070827
  Transmission Date: 20080115
  Serious: No
  Sender: FDA-Public Use
  Company Number: 2007US001980

PATIENT
  Age: 86 Year
  Sex: Female

DRUGS (7)
  1. VESICARE [Suspect]
     Indication: BLADDER DISORDER
     Dosage: 10 MG
     Dates: start: 20070730
  2. PHENOBARBITAL (PHENOBARBITAL SODIUM) [Concomitant]
  3. FOSAMAX [Concomitant]
  4. ASPIRIN [Concomitant]
  5. GLUCOSAMINE (COD-LIVER OIL) [Concomitant]
  6. CALCIUM PHOSPHATE (CALCIUM PHOSPHATE) [Concomitant]
  7. CHONDROITIN (CHONDROITIN) [Concomitant]

REACTIONS (1)
  - DYSARTHRIA [None]
